FAERS Safety Report 10201181 (Version 1)
Quarter: 2014Q2

REPORT INFORMATION
  Report Type: Spontaneous
  Country: US (occurrence: US)
  Receive Date: 20140528
  Receipt Date: 20140528
  Transmission Date: 20141212
  Serious: No
  Sender: FDA-Public Use
  Company Number: US-PFIZER INC-2014142568

PATIENT
  Age: 54 Year
  Sex: Female

DRUGS (7)
  1. LYRICA [Suspect]
     Dosage: UNK
     Route: 048
  2. OXYCODONE [Suspect]
     Dosage: UNK
  3. BIAXIN [Suspect]
     Dosage: UNK
     Route: 048
  4. LUNESTA [Suspect]
     Dosage: UNK
  5. TAMOXIFEN CITRATE [Suspect]
     Dosage: UNK
     Route: 048
  6. ARIMIDEX [Suspect]
     Dosage: UNK
     Route: 048
  7. CODEINE [Suspect]
     Dosage: UNK

REACTIONS (1)
  - Drug hypersensitivity [Unknown]
